FAERS Safety Report 5598090-6 (Version None)
Quarter: 2008Q1

REPORT INFORMATION
  Report Type: 
  Country: None (occurrence: None)
  Receive Date: 20080122
  Receipt Date: 20080114
  Transmission Date: 20080703
  Serious: Yes (Disabling, Other)
  Sender: FDA-Public Use
  Company Number: PHRM2008FR00594

PATIENT
  Age: 52 Year
  Sex: Female

DRUGS (14)
  1. ZOMETA [Suspect]
     Indication: METASTASES TO BONE
     Dosage: 4 MG, TIW
     Route: 042
     Dates: start: 20050808, end: 20060601
  2. CAELYX [Suspect]
     Indication: BREAST CANCER METASTATIC
     Route: 042
     Dates: start: 20060214, end: 20060420
  3. NAVELBINE [Suspect]
     Indication: BREAST CANCER METASTATIC
     Dates: start: 20050725, end: 20060121
  4. NAVELBINE [Suspect]
     Dates: start: 20070401
  5. SOLUPRED [Suspect]
     Dates: start: 20050725, end: 20070220
  6. PROZAC [Concomitant]
     Indication: DEPRESSION
     Dates: start: 19910101
  7. TRANXENE [Concomitant]
     Indication: DEPRESSION
     Dates: start: 19910101
  8. EFFEXOR [Concomitant]
     Indication: DEPRESSION
     Dosage: UNK, UNK
     Dates: start: 20010101
  9. PROFENID [Concomitant]
     Indication: METASTATIC PAIN
     Dates: start: 20060101
  10. KETOPROFEN [Concomitant]
     Indication: METASTATIC PAIN
     Route: 042
     Dates: start: 20060101
  11. TAXOL [Concomitant]
     Indication: BREAST CANCER METASTATIC
     Dates: start: 20060526, end: 20061106
  12. ZOPHREN [Concomitant]
     Indication: ANTIEMETIC SUPPORTIVE CARE
  13. GEMCITABINE [Concomitant]
     Indication: BREAST CANCER METASTATIC
  14. OXALIPLATIN [Concomitant]
     Indication: BREAST CANCER METASTATIC

REACTIONS (3)
  - IMPAIRED HEALING [None]
  - MALIGNANT NEOPLASM PROGRESSION [None]
  - OSTEONECROSIS [None]
